FAERS Safety Report 8184690-6 (Version None)
Quarter: 2012Q1

REPORT INFORMATION
  Report Type: 
  Country: None (occurrence: None)
  Receive Date: 20120305
  Receipt Date: 20120220
  Transmission Date: 20120608
  Serious: Yes (Hospitalization)
  Sender: FDA-Public Use
  Company Number: US-BAYER-201017005NA

PATIENT
  Age: 42 Year
  Sex: Female
  Weight: 102 kg

DRUGS (4)
  1. YAZ [Suspect]
  2. PROZAC [Concomitant]
     Indication: PREMENSTRUAL SYNDROME
     Dosage: 40 MG, UNK
  3. YAZ [Suspect]
     Indication: PREMENSTRUAL SYNDROME
     Dosage: UNK
     Route: 048
     Dates: start: 20040101, end: 20080601
  4. PEN-VEE K [Concomitant]
     Route: 048

REACTIONS (6)
  - POST THROMBOTIC SYNDROME [None]
  - MENTAL DISORDER [None]
  - PAIN IN EXTREMITY [None]
  - OEDEMA PERIPHERAL [None]
  - ERYTHEMA [None]
  - DEEP VEIN THROMBOSIS [None]
